FAERS Safety Report 6422083-X (Version None)
Quarter: 2009Q4

REPORT INFORMATION
  Report Type: 
  Country: None (occurrence: None)
  Receive Date: 20091030
  Receipt Date: 20091021
  Transmission Date: 20100525
  Serious: Yes (Other)
  Sender: FDA-Public Use
  Company Number: IN-JNJFOC-20091007000

PATIENT
  Age: 44 Year
  Sex: Female

DRUGS (6)
  1. OFLOXACIN [Suspect]
     Indication: DIARRHOEA
     Route: 042
  2. DOPAMINE HCL [Concomitant]
     Route: 065
  3. RABEPRAZOLE [Concomitant]
     Route: 065
  4. ALBUTEROL [Concomitant]
     Route: 065
  5. PROBIOTICS [Concomitant]
     Indication: DIARRHOEA
     Route: 065
  6. ARTESUNATE [Concomitant]
     Route: 065

REACTIONS (2)
  - CONDITION AGGRAVATED [None]
  - LEUKOPENIA [None]
